FAERS Safety Report 16683596 (Version 1)
Quarter: 2019Q3

REPORT INFORMATION
  Report Type: Spontaneous
  Country: US (occurrence: US)
  Receive Date: 20190808
  Receipt Date: 20190808
  Transmission Date: 20191004
  Serious: No
  Sender: FDA-Public Use
  Company Number: US-ALLERGAN-1919140US

PATIENT
  Age: 37 Year
  Sex: Male

DRUGS (2)
  1. ANDRODERM [Suspect]
     Active Substance: TESTOSTERONE
     Indication: KLINEFELTER^S SYNDROME
     Route: 062
  2. OTHER TESTOSTERONE PATCHES [Concomitant]
     Indication: KLINEFELTER^S SYNDROME
     Route: 062

REACTIONS (3)
  - Product adhesion issue [Unknown]
  - Immunodeficiency [Not Recovered/Not Resolved]
  - Rash [Not Recovered/Not Resolved]
